FAERS Safety Report 5990503-0 (Version None)
Quarter: 2008Q4

REPORT INFORMATION
  Report Type: 
  Country: None (occurrence: None)
  Receive Date: 20081211
  Receipt Date: 20081203
  Transmission Date: 20090506
  Serious: Yes (Other)
  Sender: FDA-Public Use
  Company Number: DE-AMGEN-UK307291

PATIENT
  Sex: Male

DRUGS (3)
  1. PANITUMUMAB [Suspect]
     Indication: SQUAMOUS CELL CARCINOMA
     Route: 042
     Dates: start: 20080818
  2. FLUOROURACIL [Concomitant]
     Route: 065
     Dates: start: 20080818, end: 20080822
  3. CISPLATIN [Concomitant]
     Route: 065
     Dates: start: 20080818, end: 20080818

REACTIONS (2)
  - HYPERTHERMIA [None]
  - THROMBOSIS [None]
